FAERS Safety Report 12073130 (Version 1)
Quarter: 2016Q1

REPORT INFORMATION
  Report Type: Spontaneous
  Country: US (occurrence: US)
  Receive Date: 20160212
  Receipt Date: 20160212
  Transmission Date: 20160526
  Serious: No
  Sender: FDA-Public Use
  Company Number: US-GLAXOSMITHKLINE-US2016018184

PATIENT
  Age: 84 Year
  Sex: Female

DRUGS (10)
  1. CARVEDILOL. [Concomitant]
     Active Substance: CARVEDILOL
  2. CLOPIDOGREL [Concomitant]
     Active Substance: CLOPIDOGREL BISULFATE
  3. BREO ELLIPTA [Suspect]
     Active Substance: FLUTICASONE FUROATE\VILANTEROL TRIFENATATE
     Indication: CHRONIC OBSTRUCTIVE PULMONARY DISEASE
     Dosage: 1 PUFF(S), 1D
     Dates: start: 201601
  4. COMBIVENT [Concomitant]
     Active Substance: ALBUTEROL SULFATE\IPRATROPIUM BROMIDE
  5. BUMETANIDE. [Concomitant]
     Active Substance: BUMETANIDE
  6. LOVASTATIN. [Concomitant]
     Active Substance: LOVASTATIN
  7. ASPIRIN (BABY) [Concomitant]
     Active Substance: ASPIRIN
  8. OXYGEN. [Concomitant]
     Active Substance: OXYGEN
  9. DOCUSATE [Concomitant]
     Active Substance: DOCUSATE
  10. TYLENOL [Concomitant]
     Active Substance: ACETAMINOPHEN

REACTIONS (4)
  - Lip exfoliation [Recovering/Resolving]
  - Lip blister [Recovering/Resolving]
  - Oral mucosal blistering [Recovering/Resolving]
  - Dry mouth [Unknown]

NARRATIVE: CASE EVENT DATE: 201601
